FAERS Safety Report 25186494 (Version 3)
Quarter: 2025Q2

REPORT INFORMATION
  Report Type: Spontaneous
  Country: US (occurrence: US)
  Receive Date: 20250411
  Receipt Date: 20250616
  Transmission Date: 20250717
  Serious: No
  Sender: IPSEN BIOPHARMACEUTICALS, INC.
  Company Number: US-IPSEN Group, Research and Development-2025-08298

PATIENT
  Age: 45 Year
  Sex: Female
  Weight: 108 kg

DRUGS (23)
  1. TAZVERIK [Suspect]
     Active Substance: TAZEMETOSTAT HYDROBROMIDE
     Indication: Soft tissue sarcoma
     Route: 048
     Dates: start: 202404
  2. ASTEPRO [Concomitant]
     Active Substance: AZELASTINE HYDROCHLORIDE
     Route: 045
  3. DOCUSATE [Concomitant]
     Active Substance: DOCUSATE
  4. FERROUS SULFATE [Concomitant]
     Active Substance: FERROUS SULFATE
  5. GABAPENTIN [Concomitant]
     Active Substance: GABAPENTIN
  6. MORPHINE SULFATE [Concomitant]
     Active Substance: MORPHINE SULFATE
  7. NALOXONE [Concomitant]
     Active Substance: NALOXONE
     Route: 045
  8. NAPROXEN [Concomitant]
     Active Substance: NAPROXEN
  9. ZOFRAN [Concomitant]
     Active Substance: ONDANSETRON HYDROCHLORIDE
  10. PROBIOTICS NOS [Concomitant]
     Active Substance: PROBIOTICS NOS
  11. PRIMATENE MIST [Concomitant]
     Active Substance: EPINEPHRINE
  12. TRANEXAMIC ACID [Concomitant]
     Active Substance: TRANEXAMIC ACID
  13. XYZAL [Concomitant]
     Active Substance: LEVOCETIRIZINE DIHYDROCHLORIDE
  14. VITAMIN D NOS [Concomitant]
     Active Substance: CHOLECALCIFEROL\ERGOCALCIFEROL
  15. IBUPROFEN [Concomitant]
     Active Substance: IBUPROFEN
  16. TYLENOL [Concomitant]
     Active Substance: ACETAMINOPHEN
  17. MUCINEX DM [Concomitant]
     Active Substance: DEXTROMETHORPHAN HYDROBROMIDE\GUAIFENESIN
  18. ACETAMINOPHEN [Concomitant]
     Active Substance: ACETAMINOPHEN
  19. ALBUTEROL [Concomitant]
     Active Substance: ALBUTEROL
  20. CELEBREX [Concomitant]
     Active Substance: CELECOXIB
  21. STOOL SOFTENER (DOCUSATE) [Concomitant]
     Active Substance: DOCUSATE
  22. SACCHAROMYCES CEREVISIAE [Concomitant]
     Active Substance: SACCHAROMYCES CEREVISIAE
  23. ONDANSETRON [Concomitant]
     Active Substance: ONDANSETRON

REACTIONS (6)
  - COVID-19 [Recovered/Resolved]
  - Hypoaesthesia [Recovering/Resolving]
  - Gastrointestinal disorder [Recovering/Resolving]
  - Insomnia [Recovering/Resolving]
  - Nausea [Not Recovered/Not Resolved]
  - Product dose omission issue [Unknown]

NARRATIVE: CASE EVENT DATE: 20250405
